FAERS Safety Report 20059173 (Version 1)
Quarter: 2021Q4

REPORT INFORMATION
  Report Type: Spontaneous
  Country: US (occurrence: None)
  Receive Date: 20211111
  Receipt Date: 20211111
  Transmission Date: 20220303
  Serious: Yes (Death)
  Sender: FDA-Public Use
  Company Number: None

PATIENT
  Age: 67 Year
  Sex: Female
  Weight: 77.7 kg

DRUGS (3)
  1. IMBRUVICA [Suspect]
     Active Substance: IBRUTINIB
     Dosage: FREQUENCY : DAILY;?
     Route: 048
     Dates: start: 20210820, end: 20210831
  2. TEMOZOLOMIDE [Suspect]
     Active Substance: TEMOZOLOMIDE
     Route: 048
     Dates: start: 20211012, end: 20211016
  3. DECADRON [Suspect]
     Active Substance: DEXAMETHASONE

REACTIONS (1)
  - Respiratory distress [None]

NARRATIVE: CASE EVENT DATE: 20211109
